FAERS Safety Report 10293390 (Version 1)
Quarter: 2014Q3

REPORT INFORMATION
  Report Type: Spontaneous
  Country: IT (occurrence: IT)
  Receive Date: 20140710
  Receipt Date: 20140710
  Transmission Date: 20150326
  Serious: Yes (Hospitalization)
  Sender: FDA-Public Use
  Company Number: IT-GLAXOSMITHKLINE-B1012342A

PATIENT
  Age: 77 Year
  Sex: Female

DRUGS (14)
  1. ACICLOVIR [Concomitant]
     Active Substance: ACYCLOVIR
  2. DIBASE [Concomitant]
     Active Substance: CHOLECALCIFEROL
  3. ALKERAN [Suspect]
     Active Substance: MELPHALAN
     Indication: PLASMA CELL MYELOMA
     Dosage: 2MG PER DAY
     Route: 048
     Dates: start: 20140131
  4. ISOPTIN [Concomitant]
     Active Substance: VERAPAMIL HYDROCHLORIDE
  5. LASIX [Concomitant]
     Active Substance: FUROSEMIDE
  6. AZITROMICINA [Concomitant]
     Active Substance: AZITHROMYCIN DIHYDRATE
  7. SINTROM [Suspect]
     Active Substance: ACENOCOUMAROL
     Indication: AORTIC VALVE REPLACEMENT
     Route: 048
     Dates: start: 20130621, end: 20140621
  8. DELTACORTENE [Concomitant]
     Active Substance: PREDNISONE
     Dosage: 10TAB PER DAY
  9. LYRICA [Concomitant]
     Active Substance: PREGABALIN
     Route: 048
  10. TORVAST [Concomitant]
     Active Substance: ATORVASTATIN
  11. EFFERALGAN [Concomitant]
     Active Substance: ACETAMINOPHEN
  12. DUSPATAL [Concomitant]
     Active Substance: MEBEVERINE
  13. VELCADE [Suspect]
     Active Substance: BORTEZOMIB
     Indication: PLASMA CELL MYELOMA
     Dosage: 3.5MG PER DAY
     Route: 042
     Dates: start: 20140131, end: 20140603
  14. SIRDALUD [Concomitant]
     Active Substance: TIZANIDINE

REACTIONS (2)
  - Thrombocytopenia [Recovering/Resolving]
  - Haemoptysis [Recovering/Resolving]

NARRATIVE: CASE EVENT DATE: 20140620
